FAERS Safety Report 8036564-9 (Version None)
Quarter: 2012Q1

REPORT INFORMATION
  Report Type: 
  Country: None (occurrence: None)
  Receive Date: 20120111
  Receipt Date: 20120102
  Transmission Date: 20120608
  Serious: Yes (Other)
  Sender: FDA-Public Use
  Company Number: FR-TEVA-316310ISR

PATIENT
  Sex: Female

DRUGS (1)
  1. BUPRENORPHINE [Suspect]
     Indication: DRUG DEPENDENCE
     Dosage: (MEAN DOSAGE) 6.3 +/- 5.3 MG/DAY AT START OF PREGNANCY
     Route: 065

REACTIONS (2)
  - PRE-ECLAMPSIA [None]
  - STILLBIRTH [None]
